FAERS Safety Report 9587310 (Version 1)
Quarter: 2013Q4

REPORT INFORMATION
  Report Type: Spontaneous
  Country: BR (occurrence: BR)
  Receive Date: 20131003
  Receipt Date: 20131003
  Transmission Date: 20140711
  Serious: Yes (Hospitalization)
  Sender: FDA-Public Use
  Company Number: BR-PFIZER INC-2013280978

PATIENT
  Age: 44 Year
  Sex: Female
  Weight: 80 kg

DRUGS (3)
  1. LYRICA [Suspect]
     Indication: SPINAL PAIN
     Dosage: 1 TABLET (75 MG), DAILY
     Route: 048
     Dates: start: 2011
  2. OMEPRAZOLE [Concomitant]
     Indication: GASTRIC DISORDER
     Dosage: 1 TABLET (UNSPECIFIED DOSE), DAILY
     Dates: start: 2005
  3. PURAN T4 [Concomitant]
     Indication: THYROID DISORDER
     Dosage: 1 TABLET (^112MG^), DAILY
     Dates: start: 2001

REACTIONS (1)
  - Intervertebral disc protrusion [Unknown]
